FAERS Safety Report 5912178-9 (Version None)
Quarter: 2008Q4

REPORT INFORMATION
  Report Type: 
  Country: None (occurrence: None)
  Receive Date: 20081003
  Receipt Date: 20081003
  Transmission Date: 20090506
  Serious: Yes (Other)
  Sender: FDA-Public Use
  Company Number: None

PATIENT
  Sex: Female
  Weight: 113.3993 kg

DRUGS (3)
  1. ABILIFY [Suspect]
     Indication: BIPOLAR I DISORDER
     Dosage: 10 MG DAILY PO
     Route: 048
  2. ABILIFY [Suspect]
     Indication: PSYCHOTIC DISORDER
     Dosage: 10 MG DAILY PO
     Route: 048
  3. ABILIFY [Suspect]
     Indication: SCHIZOAFFECTIVE DISORDER
     Dosage: 10 MG DAILY PO
     Route: 048

REACTIONS (6)
  - CONDITION AGGRAVATED [None]
  - FLIGHT OF IDEAS [None]
  - INSOMNIA [None]
  - IRRITABILITY [None]
  - NERVOUSNESS [None]
  - RESTLESSNESS [None]
